FAERS Safety Report 4499176-X (Version None)
Quarter: 2004Q4

REPORT INFORMATION
  Report Type: 
  Country: None (occurrence: None)
  Receive Date: 20041111
  Receipt Date: 20040818
  Transmission Date: 20050328
  Serious: Yes (Hospitalization, Other)
  Sender: FDA-Public Use
  Company Number: US-GLAXOSMITHKLINE-A0522878A

PATIENT
  Age: 48 Year
  Sex: Female
  Weight: 106 kg

DRUGS (12)
  1. RELAFEN [Suspect]
     Indication: DRUG USE FOR UNKNOWN INDICATION
     Route: 048
     Dates: start: 20010401, end: 20030501
  2. COUMADIN [Suspect]
     Indication: PULMONARY EMBOLISM
     Route: 048
     Dates: start: 20020401, end: 20030422
  3. METHOTREXATE [Suspect]
     Indication: RHEUMATOID ARTHRITIS
     Dosage: 8TAB WEEKLY
     Route: 048
     Dates: start: 20020130
  4. PREDNISONE [Concomitant]
     Indication: RHEUMATOID ARTHRITIS
     Route: 048
     Dates: start: 20020130
  5. FOLIC ACID [Concomitant]
     Route: 048
     Dates: start: 20020130
  6. PRAVACHOL [Concomitant]
     Route: 048
     Dates: start: 19990101
  7. PROZAC [Concomitant]
     Route: 048
     Dates: start: 19990101
  8. RHINOCORT [Concomitant]
     Dates: start: 20020101
  9. LASIX [Concomitant]
     Route: 048
     Dates: start: 20020101
  10. LISINOPRIL [Concomitant]
     Route: 048
     Dates: start: 20020101
  11. ULTRACET [Concomitant]
     Route: 048
     Dates: start: 20020401
  12. REMICADE [Concomitant]
     Dates: start: 20021101

REACTIONS (1)
  - ULCER HAEMORRHAGE [None]
